FAERS Safety Report 7242144-5 (Version None)
Quarter: 2011Q1

REPORT INFORMATION
  Report Type: 
  Country: None (occurrence: None)
  Receive Date: 20110124
  Receipt Date: 20110119
  Transmission Date: 20110831
  Serious: Yes (Hospitalization)
  Sender: FDA-Public Use
  Company Number: FR-PFIZER INC-2011013061

PATIENT
  Age: 13 Year
  Sex: Male

DRUGS (3)
  1. NIFLURIL [Suspect]
     Indication: ORCHITIS
     Dosage: 400 MG, 3X/DAY
     Route: 065
     Dates: start: 20100319, end: 20100331
  2. CLAMOXYL [Suspect]
     Indication: ORCHITIS
     Dosage: 750 MG, 3X/DAY
     Route: 048
     Dates: start: 20100319, end: 20100331
  3. ADVIL [Suspect]
     Indication: PRODUCT USED FOR UNKNOWN INDICATION
     Dosage: 1200MG DAILY
     Route: 065
     Dates: start: 20100401, end: 20100406

REACTIONS (2)
  - ABDOMINAL PAIN [None]
  - TUBULOINTERSTITIAL NEPHRITIS [None]
